FAERS Safety Report 5163214-1 (Version None)
Quarter: 2006Q4

REPORT INFORMATION
  Report Type: 
  Country: None (occurrence: None)
  Receive Date: 20061204
  Receipt Date: 20061122
  Transmission Date: 20070319
  Serious: Yes (Other)
  Sender: FDA-Public Use
  Company Number: PHEH2006US14550

PATIENT

DRUGS (1)
  1. LAMISIL [Suspect]
     Route: 065

REACTIONS (2)
  - CONTUSION [None]
  - PURPURA [None]
